FAERS Safety Report 15467170 (Version 1)
Quarter: 2018Q4

REPORT INFORMATION
  Report Type: Spontaneous
  Country: ES (occurrence: ES)
  Receive Date: 20181005
  Receipt Date: 20181005
  Transmission Date: 20190204
  Serious: Yes (Other)
  Sender: FDA-Public Use
  Company Number: ES-TEVA-2018-ES-961165

PATIENT
  Age: 88 Year
  Sex: Female
  Weight: 38 kg

DRUGS (3)
  1. SEPTRIN [Suspect]
     Active Substance: SULFAMETHOXAZOLE\TRIMETHOPRIM
     Route: 048
     Dates: start: 20170713
  2. ALOPURINOL (318A) [Suspect]
     Active Substance: ALLOPURINOL
     Route: 048
     Dates: start: 20180713
  3. BENDAMUSTINA ACCORD 2,5 MG/ML POLVO PARA CONCENTRADO PARA SOLUCION PAR [Suspect]
     Active Substance: BENDAMUSTINE
     Indication: LYMPHOMA
     Dosage: 75 MG DAY 1 AND 2 OF EACH CYCLE EVERY 21 DAYS , CONCENTRATE POWDER FOR PERFUSION SOLUTION EFG, 5 VIA
     Route: 042
     Dates: start: 20180705, end: 20180706

REACTIONS (1)
  - Rash papular [Recovered/Resolved]

NARRATIVE: CASE EVENT DATE: 20180726
